FAERS Safety Report 5199167-X (Version None)
Quarter: 2006Q4

REPORT INFORMATION
  Report Type: 
  Country: None (occurrence: None)
  Receive Date: 20061016
  Receipt Date: 20060628
  Transmission Date: 20070319
  Serious: No
  Sender: FDA-Public Use
  Company Number: 2006SP002366

PATIENT
  Age: 49 Year
  Sex: Male

DRUGS (7)
  1. LUNESTA [Suspect]
     Indication: INSOMNIA
     Dosage: 3 MG;HS;ORAL
     Route: 048
     Dates: start: 20060601
  2. LISINOPRIL [Concomitant]
  3. GLYBURIDE [Concomitant]
  4. LASIX [Concomitant]
  5. ALBUTEROL [Concomitant]
  6. TIOTROPIUM [Concomitant]
  7. AMITRIPTYLINE HCL [Concomitant]

REACTIONS (1)
  - INSOMNIA [None]
